FAERS Safety Report 4310957-5 (Version None)
Quarter: 2004Q1

REPORT INFORMATION
  Report Type: 
  Country: None (occurrence: None)
  Receive Date: 20040302
  Receipt Date: 20040218
  Transmission Date: 20041129
  Serious: Yes (Hospitalization, Other)
  Sender: FDA-Public Use
  Company Number: HQWYE232823FEB04

PATIENT
  Age: 16 Year
  Sex: Female

DRUGS (2)
  1. PHENERGAN [Suspect]
     Indication: COUGH
     Dosage: ONE DOSE
  2. PHENERGAN VC WITH CODEINE (PROMETHAZINE HCL/ CODEINE PHOSPHATE/PHENYLE [Suspect]
     Indication: COUGH
     Dosage: ORAL
     Route: 048

REACTIONS (4)
  - ABNORMAL BEHAVIOUR [None]
  - ANXIETY [None]
  - HALLUCINATIONS, MIXED [None]
  - PSYCHOTIC DISORDER [None]
